FAERS Safety Report 10235355 (Version 1)
Quarter: 2014Q2

REPORT INFORMATION
  Report Type: Spontaneous
  Country: GB (occurrence: None)
  Receive Date: 20140611
  Receipt Date: 20140611
  Transmission Date: 20141212
  Serious: Yes (Death, Other)
  Sender: FDA-Public Use
  Company Number: FK201402239

PATIENT
  Age: 55 Year
  Sex: Male
  Weight: 70 kg

DRUGS (5)
  1. GEMCITABINE [Suspect]
     Indication: PANCREATIC CARCINOMA METASTATIC
     Route: 041
     Dates: start: 201201
  2. GEMCITABINE [Suspect]
     Indication: METASTASES TO LUNG
     Route: 041
     Dates: start: 201201
  3. ABRAXANE [Suspect]
     Indication: PANCREATIC CARCINOMA METASTATIC
     Route: 041
     Dates: start: 201201
  4. ABRAXANE [Suspect]
     Indication: METASTASES TO LUNG
     Route: 041
     Dates: start: 201201
  5. CAPECITABINE (CAPECITABINE) (CAPECITABINE) [Concomitant]

REACTIONS (10)
  - Malignant neoplasm progression [None]
  - Anaemia [None]
  - Nausea [None]
  - Neuropathy peripheral [None]
  - Neutropenia [None]
  - Pancreatic carcinoma [None]
  - Fatigue [None]
  - General physical health deterioration [None]
  - Peritoneal disorder [None]
  - Ascites [None]
